FAERS Safety Report 4494659-0 (Version None)
Quarter: 2004Q4

REPORT INFORMATION
  Report Type: 
  Country: None (occurrence: None)
  Receive Date: 20041103
  Receipt Date: 20041022
  Transmission Date: 20050328
  Serious: Yes (Hospitalization)
  Sender: FDA-Public Use
  Company Number: 2004082822

PATIENT
  Age: 62 Year
  Sex: Female
  Weight: 70 kg

DRUGS (1)
  1. SULPERAZONE (CEFOPERAZONE, SULBACTAM) [Suspect]
     Indication: SEPSIS
     Dosage: 9 GRAM (3 GRAM, 3 IN 1 D), INTRAVENOUS
     Route: 042
     Dates: start: 20040527, end: 20040603

REACTIONS (2)
  - ACTIVATED PARTIAL THROMBOPLASTIN TIME PROLONGED [None]
  - PLATELET COUNT DECREASED [None]
